FAERS Safety Report 6232141-0 (Version None)
Quarter: 2009Q2

REPORT INFORMATION
  Report Type: 
  Country: None (occurrence: None)
  Receive Date: 20090617
  Receipt Date: 20090611
  Transmission Date: 20091009
  Serious: Yes (Other)
  Sender: FDA-Public Use
  Company Number: US-ROCHE-637747

PATIENT
  Sex: Male
  Weight: 81.6 kg

DRUGS (1)
  1. CAPECITABINE [Suspect]
     Indication: COLORECTAL CANCER
     Dosage: DOSE AND FREQUENCY: 3 PO TID
     Route: 048
     Dates: start: 20090326

REACTIONS (1)
  - DISEASE PROGRESSION [None]
